FAERS Safety Report 15790389 (Version 2)
Quarter: 2019Q2

REPORT INFORMATION
  Report Type: Spontaneous
  Country: FR (occurrence: FR)
  Receive Date: 20190104
  Receipt Date: 20190401
  Transmission Date: 20190711
  Serious: Yes (Hospitalization, Other)
  Sender: FDA-Public Use
  Company Number: FR-009507513-1612FRA009433

PATIENT
  Age: 3 Year
  Sex: Female
  Weight: 13.8 kg

DRUGS (12)
  1. SINEMET [Suspect]
     Active Substance: CARBIDOPA\LEVODOPA
     Indication: PHENYLKETONURIA
     Dosage: UNK
  2. LEVOTONINE [Suspect]
     Active Substance: OXITRIPTAN
     Indication: PHENYLKETONURIA
     Dosage: PROGRESSIVE UP-DOSING
     Route: 048
     Dates: start: 201312, end: 201605
  3. KUVAN [Suspect]
     Active Substance: SAPROPTERIN DIHYDROCHLORIDE
     Indication: TETRAHYDROBIOPTERIN DEFICIENCY
     Dosage: 100 MG, BID
     Route: 048
     Dates: start: 201312
  4. LEVOTONINE [Suspect]
     Active Substance: OXITRIPTAN
     Indication: PHENYLKETONURIA
     Dosage: 30 MILLIGRAM, Q4D
     Route: 048
     Dates: start: 201605, end: 20161127
  5. SINEMET [Suspect]
     Active Substance: CARBIDOPA\LEVODOPA
     Indication: TETRAHYDROBIOPTERIN DEFICIENCY
     Dosage: 50 MILLIGRAM, QD (ALSO REPORTED AS 50 MG, 4X/DAY), FORMULATION: ALSO REPORTED AS CAPSULE
     Route: 048
     Dates: start: 20130902, end: 20161127
  6. LEDERFOLINE [Suspect]
     Active Substance: LEUCOVORIN CALCIUM
     Indication: PHENYLKETONURIA
     Dosage: UNK
     Dates: start: 201312
  7. LEVOTONINE [Suspect]
     Active Substance: OXITRIPTAN
     Dosage: 30 MILLIGRAM, QD (CAPSULES REPACKED IN A PHARMACY TO HAVE THE GOOD DOSAGE. AT 7 AM, 1 PM, 7 PM, 1 AM
     Route: 048
     Dates: start: 20161127, end: 20161128
  8. FOLIC ACID. [Concomitant]
     Active Substance: FOLIC ACID
     Indication: PHENYLKETONURIA
  9. SINEMET [Suspect]
     Active Substance: CARBIDOPA\LEVODOPA
     Indication: NEUROTRANSMITTER LEVEL ALTERED
  10. SINEMET [Suspect]
     Active Substance: CARBIDOPA\LEVODOPA
     Indication: PARKINSONISM
     Dosage: CAPSULES REPACKED IN A PHARMACY TO HAVE THE GOOD DOSAGE (50MG/5MG) AT 7 AM, 1 PM, 7 PM, 1 AM
     Route: 048
     Dates: start: 201312, end: 20161127
  11. KUVAN [Suspect]
     Active Substance: SAPROPTERIN DIHYDROCHLORIDE
     Indication: PHENYLKETONURIA
     Dosage: 100 MILLIGRAM, QD (ALSO REPORTED AS 100 MG, BID  )
     Dates: start: 201312
  12. LEDERFOLINE [Concomitant]
     Active Substance: LEUCOVORIN CALCIUM
     Indication: PHENYLKETONURIA
     Dosage: UNK

REACTIONS (14)
  - Product preparation error [Unknown]
  - Hypertonia [Recovered/Resolved]
  - Parkinsonism [Unknown]
  - Accidental overdose [Unknown]
  - Somnolence [Recovered/Resolved]
  - Unresponsive to stimuli [Recovered/Resolved]
  - Parkinsonism [Recovered/Resolved]
  - Drooling [Recovered/Resolved]
  - Trismus [Recovered/Resolved]
  - Product use in unapproved indication [Unknown]
  - Salivary hypersecretion [Recovered/Resolved]
  - Extrapyramidal disorder [Recovered/Resolved]
  - Somnolence [Recovered/Resolved]
  - Extrapyramidal disorder [Recovered/Resolved]

NARRATIVE: CASE EVENT DATE: 20161118
